FAERS Safety Report 7808839-7 (Version None)
Quarter: 2011Q4

REPORT INFORMATION
  Report Type: 
  Country: None (occurrence: None)
  Receive Date: 20111006
  Receipt Date: 20110920
  Transmission Date: 20120403
  Serious: Yes (Hospitalization)
  Sender: FDA-Public Use
  Company Number: 2011MA014192

PATIENT
  Age: 25 Year
  Sex: Female

DRUGS (2)
  1. EPINEPHRINE [Suspect]
     Indication: TOOTH EXTRACTION
     Dosage: ;X2;DENT
     Route: 004
  2. LIDOCAINE [Suspect]
     Indication: TOOTH EXTRACTION
     Dosage: 2.2 ML;X2;DENT
     Route: 004

REACTIONS (9)
  - BLINDNESS [None]
  - PALLOR [None]
  - IIIRD NERVE PARALYSIS [None]
  - TRIGEMINAL PALSY [None]
  - VITH NERVE PARALYSIS [None]
  - MYDRIASIS [None]
  - EYE DISORDER [None]
  - AMAUROSIS [None]
  - EYELID PTOSIS [None]
